FAERS Safety Report 10728427 (Version 11)
Quarter: 2019Q3

REPORT INFORMATION
  Report Type: Report from Study
  Country: BR (occurrence: BR)
  Receive Date: 20150122
  Receipt Date: 20190717
  Transmission Date: 20191004
  Serious: Yes (Hospitalization, Other)
  Sender: FDA-Public Use
  Company Number: BR-ROCHE-1523438

PATIENT
  Age: 64 Year
  Sex: Female
  Weight: 50 kg

DRUGS (5)
  1. PREDNISOLONE SODIUM PHOSPHATE. [Concomitant]
     Active Substance: PREDNISOLONE SODIUM PHOSPHATE
  2. CARVEDILOL. [Concomitant]
     Active Substance: CARVEDILOL
  3. SPIRONOLACTONE. [Concomitant]
     Active Substance: SPIRONOLACTONE
  4. ACTEMRA [Suspect]
     Active Substance: TOCILIZUMAB
     Indication: RHEUMATOID ARTHRITIS
     Dosage: MOST RECENT IN SEP/2014?MOST RECENT IN 01/DEC/2016?MOST RECENT DRUG ON 01/JAN/2019?MOST RECENT DOSE
     Route: 042
     Dates: start: 20140401, end: 20161101
  5. FOLACIN [FOLIC ACID] [Concomitant]
     Active Substance: FOLIC ACID

REACTIONS (15)
  - Skin ulcer [Not Recovered/Not Resolved]
  - Hypersensitivity [Recovered/Resolved]
  - Memory impairment [Not Recovered/Not Resolved]
  - Influenza [Not Recovered/Not Resolved]
  - Arthropathy [Unknown]
  - Bone pain [Not Recovered/Not Resolved]
  - Gait disturbance [Not Recovered/Not Resolved]
  - Pain [Not Recovered/Not Resolved]
  - Arthropathy [Recovering/Resolving]
  - Immunodeficiency [Not Recovered/Not Resolved]
  - Suture rupture [Recovering/Resolving]
  - Anaemia [Not Recovered/Not Resolved]
  - Femur fracture [Recovered/Resolved]
  - Malaise [Recovered/Resolved]
  - Fall [Unknown]

NARRATIVE: CASE EVENT DATE: 201412
